FAERS Safety Report 24772463 (Version 1)
Quarter: 2024Q4

REPORT INFORMATION
  Report Type: Spontaneous
  Country: US (occurrence: US)
  Receive Date: 20241224
  Receipt Date: 20241224
  Transmission Date: 20250114
  Serious: No
  Sender: LGM PHARMA SOLUTIONS, LLC
  Company Number: US-LGM Pharma Solutions, LLC-2167719

PATIENT
  Age: 59 Year
  Sex: Female

DRUGS (2)
  1. CHENODAL [Suspect]
     Active Substance: CHENODIOL
     Indication: Gallbladder obstruction
     Dates: start: 20230123
  2. CHENODAL [Suspect]
     Active Substance: CHENODIOL
     Indication: Abdominal hernia

REACTIONS (3)
  - Therapy interrupted [Unknown]
  - Arthralgia [Unknown]
  - Abdominal discomfort [Unknown]
